FAERS Safety Report 8221075-8 (Version None)
Quarter: 2012Q1

REPORT INFORMATION
  Report Type: 
  Country: None (occurrence: None)
  Receive Date: 20120320
  Receipt Date: 20120307
  Transmission Date: 20120608
  Serious: Yes (Other)
  Sender: FDA-Public Use
  Company Number: CA-ELI_LILLY_AND_COMPANY-CA201203002380

PATIENT
  Age: 49 Year
  Sex: Male

DRUGS (13)
  1. AMPICILLIN [Concomitant]
     Dosage: UNK
     Dates: start: 20120229
  2. MULTI-VITAMINS [Concomitant]
  3. RAMIPRIL [Concomitant]
  4. PREDNISONE [Concomitant]
  5. PENTASA [Concomitant]
  6. PANTOPRAZOLE SODIUM [Concomitant]
  7. VITAMIN D [Concomitant]
  8. AMILORIDE HYDROCHLORIDE [Concomitant]
  9. DILAUDID [Concomitant]
  10. FORTEO [Suspect]
     Dosage: 20 UG, QD
     Route: 058
     Dates: start: 20120301
  11. OSTEOFORTE [Concomitant]
  12. FORTEO [Suspect]
     Indication: OSTEOPOROSIS
     Dosage: 20 UG, QD
     Route: 058
     Dates: start: 20110602, end: 20120225
  13. LASIX [Concomitant]

REACTIONS (4)
  - DRUG INTERACTION [None]
  - SEPSIS [None]
  - URINARY TRACT INFECTION [None]
  - ARTHRALGIA [None]
